FAERS Safety Report 15900099 (Version 3)
Quarter: 2019Q1

REPORT INFORMATION
  Report Type: Spontaneous
  Country: US (occurrence: US)
  Receive Date: 20190201
  Receipt Date: 20190227
  Transmission Date: 20190417
  Serious: Yes (Hospitalization, Other)
  Sender: FDA-Public Use
  Company Number: US-PFIZER INC-2019047089

PATIENT
  Age: 54 Year

DRUGS (2)
  1. LYRICA [Suspect]
     Active Substance: PREGABALIN
     Indication: NEURALGIA
     Dosage: UNK
  2. LYRICA [Suspect]
     Active Substance: PREGABALIN
     Indication: SEIZURE

REACTIONS (8)
  - Tremor [Unknown]
  - Gait disturbance [Unknown]
  - Malaise [Unknown]
  - Intraneural cyst [Unknown]
  - Withdrawal syndrome [Unknown]
  - Multiple sclerosis [Unknown]
  - Bradycardia [Unknown]
  - Panic attack [Unknown]
